FAERS Safety Report 17369553 (Version 2)
Quarter: 2020Q1

REPORT INFORMATION
  Report Type: Report from Study
  Country: JP (occurrence: JP)
  Receive Date: 20200204
  Receipt Date: 20200226
  Transmission Date: 20200409
  Serious: Yes (Other)
  Sender: FDA-Public Use
  Company Number: NVSJ2020JP001466

PATIENT
  Age: 70 Year
  Sex: Female

DRUGS (19)
  1. NEORAL [Suspect]
     Active Substance: CYCLOSPORINE
     Dosage: 100 MG, UNK
     Route: 048
     Dates: start: 20190116
  2. FLUCONAZOLE. [Concomitant]
     Active Substance: FLUCONAZOLE
     Indication: PROPHYLAXIS
     Dosage: 200 MG, UNK
     Route: 048
     Dates: start: 20181227
  3. ACICLOVIR [Concomitant]
     Active Substance: ACYCLOVIR
     Indication: PROPHYLAXIS
     Dosage: 200 MG, UNK
     Route: 048
     Dates: start: 20181227
  4. CONCENTRATED RED CELLS [Concomitant]
     Active Substance: HUMAN RED BLOOD CELL
     Indication: PRODUCT USED FOR UNKNOWN INDICATION
     Dosage: 280 ML, ONCE/SINGLE
     Route: 065
     Dates: start: 20181217
  5. PLATELETS [Concomitant]
     Active Substance: HUMAN PLATELET, ALLOGENIC
     Dosage: 200 MG, ONCE/SINGLE
     Route: 065
     Dates: start: 20181228
  6. PLATELETS [Concomitant]
     Active Substance: HUMAN PLATELET, ALLOGENIC
     Dosage: 200 ML, ONCE/SINGLE
     Route: 065
     Dates: start: 20181231
  7. PLATELETS [Concomitant]
     Active Substance: HUMAN PLATELET, ALLOGENIC
     Dosage: 200 MG, ONCE/SINGLE
     Route: 065
     Dates: start: 20190102
  8. NEORAL [Suspect]
     Active Substance: CYCLOSPORINE
     Indication: APLASTIC ANAEMIA
     Dosage: 250 MG, UNK
     Route: 048
     Dates: start: 20181227, end: 20190107
  9. DAIPHEN [Concomitant]
     Active Substance: SULFAMETHOXAZOLE\TRIMETHOPRIM
     Indication: PROPHYLAXIS
     Dosage: 0.5 DF, UNK
     Route: 048
     Dates: start: 20181227
  10. PREDONINE [Concomitant]
     Active Substance: PREDNISOLONE
     Indication: APLASTIC ANAEMIA
     Dosage: 60 MG, UNK
     Route: 048
     Dates: start: 20190101, end: 20190109
  11. PLATELETS [Concomitant]
     Active Substance: HUMAN PLATELET, ALLOGENIC
     Indication: PRODUCT USED FOR UNKNOWN INDICATION
     Dosage: 200 MG, ONCE/SINGLE
     Route: 065
     Dates: start: 20181220
  12. SOL-MELCORT [Concomitant]
     Active Substance: METHYLPREDNISOLONE SODIUM SUCCINATE
     Indication: APLASTIC ANAEMIA
     Dosage: 125 MG, UNK
     Route: 041
     Dates: start: 20181217, end: 20181231
  13. PREDONINE [Concomitant]
     Active Substance: PREDNISOLONE
     Dosage: 30 MG
     Route: 048
     Dates: start: 20190110, end: 20190116
  14. REVOLADE TAB [Suspect]
     Active Substance: ELTROMBOPAG
     Indication: APLASTIC ANAEMIA
     Dosage: 75 MG, QD
     Route: 048
     Dates: start: 20181227, end: 20200114
  15. PREDONINE [Concomitant]
     Active Substance: PREDNISOLONE
     Dosage: 10 MG
     Route: 048
     Dates: start: 20190117, end: 20190123
  16. CONCENTRATED RED CELLS [Concomitant]
     Active Substance: HUMAN RED BLOOD CELL
     Dosage: 280 ML, ONCE/SINGLE
     Route: 065
     Dates: start: 20181219
  17. NEORAL [Suspect]
     Active Substance: CYCLOSPORINE
     Dosage: 150 MG, UNK
     Route: 048
     Dates: start: 20190108, end: 20190115
  18. THYMOGLOBULINE [Suspect]
     Active Substance: LAPINE T-LYMPHOCYTE IMMUNE GLOBULIN
     Indication: APLASTIC ANAEMIA
     Dosage: 225 MG, UNK
     Route: 041
     Dates: start: 20181227, end: 20181231
  19. TAKECAB [Concomitant]
     Active Substance: VONOPRAZAN FUMURATE
     Indication: GASTROINTESTINAL DISORDER PROPHYLAXIS
     Dosage: 10 MG, UNK
     Route: 048
     Dates: start: 20181227

REACTIONS (1)
  - Lymphocyte count decreased [Unknown]

NARRATIVE: CASE EVENT DATE: 20190205
